FAERS Safety Report 5583144-0 (Version None)
Quarter: 2008Q1

REPORT INFORMATION
  Report Type: 
  Country: None (occurrence: None)
  Receive Date: 20080103
  Receipt Date: 20080103
  Transmission Date: 20080703
  Serious: Yes (Hospitalization)
  Sender: FDA-Public Use
  Company Number: None

PATIENT
  Age: 67 Year
  Sex: Female

DRUGS (2)
  1. ASPIRIN [Suspect]
     Indication: HEADACHE
  2. WARFARIN SODIUM [Suspect]
     Indication: ATRIAL FIBRILLATION
     Dosage: 2.5MG  DAILY  PO
     Route: 048

REACTIONS (11)
  - ASTHENIA [None]
  - DIZZINESS [None]
  - GASTRIC ULCER [None]
  - HAEMOGLOBIN DECREASED [None]
  - INTERNATIONAL NORMALISED RATIO INCREASED [None]
  - MELAENA [None]
  - NAUSEA [None]
  - OESOPHAGITIS [None]
  - PRESYNCOPE [None]
  - VOMITING [None]
  - WEIGHT DECREASED [None]
